FAERS Safety Report 19633237 (Version 1)
Quarter: 2021Q3

REPORT INFORMATION
  Report Type: Spontaneous
  Country: US (occurrence: US)
  Receive Date: 20210730
  Receipt Date: 20210730
  Transmission Date: 20211014
  Serious: No
  Sender: FDA-Public Use
  Company Number: US-DRREDDYS-SPO/USA/21/0138372

PATIENT
  Age: 40 Year
  Sex: Female
  Weight: 86.85 kg

DRUGS (1)
  1. ZENATANE [Suspect]
     Active Substance: ISOTRETINOIN
     Indication: ACNE
     Dates: start: 20210719

REACTIONS (3)
  - Lip swelling [Unknown]
  - Dry skin [Unknown]
  - Oral discomfort [Unknown]
